FAERS Safety Report 12797247 (Version 1)
Quarter: 2016Q3

REPORT INFORMATION
  Report Type: Spontaneous
  Country: US (occurrence: US)
  Receive Date: 20160929
  Receipt Date: 20160929
  Transmission Date: 20161109
  Serious: Yes (Hospitalization)
  Sender: FDA-Public Use
  Company Number: None

PATIENT
  Age: 72 Year
  Sex: Male
  Weight: 107.7 kg

DRUGS (1)
  1. SOTALOL. [Suspect]
     Active Substance: SOTALOL
     Indication: ATRIAL FIBRILLATION
     Dosage: MG PO
     Route: 048
     Dates: start: 20160908, end: 20160926

REACTIONS (4)
  - Feeling abnormal [None]
  - Fatigue [None]
  - Asthenia [None]
  - Acute coronary syndrome [None]

NARRATIVE: CASE EVENT DATE: 20160926
